FAERS Safety Report 16876996 (Version 2)
Quarter: 2019Q4

REPORT INFORMATION
  Report Type: Spontaneous
  Country: CZ (occurrence: CZ)
  Receive Date: 20191002
  Receipt Date: 20191028
  Transmission Date: 20200122
  Serious: Yes (Hospitalization)
  Sender: FDA-Public Use
  Company Number: CZ-PFIZER INC-2019418292

PATIENT
  Age: 58 Year
  Sex: Female

DRUGS (11)
  1. ULTRACOD [Concomitant]
  2. CALCICHEW [Concomitant]
     Active Substance: CALCIUM CARBONATE
     Dosage: UNK
     Dates: start: 201904
  3. TORVACARD [Concomitant]
     Active Substance: ATORVASTATIN CALCIUM
  4. IBRANCE [Suspect]
     Active Substance: PALBOCICLIB
     Dosage: UNK
     Dates: start: 20190603
  5. NIMESIL [Concomitant]
     Active Substance: NIMESULIDE
     Dosage: UNK
     Dates: start: 201905
  6. TORECAN [Concomitant]
     Active Substance: THIETHYLPERAZINE MALATE
     Dosage: PREMEDICATION
     Dates: start: 20190603
  7. XGEVA [Concomitant]
     Active Substance: DENOSUMAB
     Dosage: UNK
     Dates: start: 201904
  8. HELICID [OMEPRAZOLE] [Concomitant]
     Dosage: UNK
     Dates: start: 201905
  9. LETROZOL [Concomitant]
     Active Substance: LETROZOLE
     Dosage: UNK
     Dates: start: 20190425
  10. MILURIT [Concomitant]
     Active Substance: ALLOPURINOL
  11. DEGAN [Concomitant]
     Active Substance: METOCLOPRAMIDE HYDROCHLORIDE
     Dosage: PREMEDICATION
     Dates: start: 20190603

REACTIONS (3)
  - Cough [Unknown]
  - Pulmonary embolism [Unknown]
  - Dyspnoea exertional [Unknown]

NARRATIVE: CASE EVENT DATE: 201909
